FAERS Safety Report 14913784 (Version 2)
Quarter: 2018Q3

REPORT INFORMATION
  Report Type: Spontaneous
  Country: GB (occurrence: GB)
  Receive Date: 20180518
  Receipt Date: 20180727
  Transmission Date: 20181010
  Serious: Yes (Other)
  Sender: FDA-Public Use
  Company Number: GB-PFIZER INC-2018200433

PATIENT
  Age: 34 Year
  Sex: Male
  Weight: 84 kg

DRUGS (6)
  1. ACICLOVIR [Concomitant]
     Active Substance: ACYCLOVIR
     Dosage: 5 DF, DAILY
     Dates: start: 20170821
  2. IBUPROFEN. [Suspect]
     Active Substance: IBUPROFEN
     Dosage: UNK
     Dates: start: 20180403
  3. ACIDEX [Concomitant]
     Active Substance: CALCIUM CARBONATE\SODIUM ALGINATE\SODIUM BICARBONATE
     Dosage: TAKE TWO TO FOUR 5ML SPOONFULS 4 TIMES/DAY
     Dates: start: 20180403
  4. SYMBICORT [Concomitant]
     Active Substance: BUDESONIDE\FORMOTEROL FUMARATE DIHYDRATE
     Dosage: USE AS DIRECTED
     Dates: start: 20171018
  5. SALBUTAMOL [Concomitant]
     Active Substance: ALBUTEROL
     Dosage: 8 DF, DAILY PUFFS
     Dates: start: 20171018
  6. EMOZUL [Concomitant]
     Dosage: 2 DF, DAILY
     Dates: start: 20170821

REACTIONS (1)
  - Angioedema [Recovered/Resolved]

NARRATIVE: CASE EVENT DATE: 20180403
